FAERS Safety Report 7661359-5 (Version None)
Quarter: 2011Q3

REPORT INFORMATION
  Report Type: 
  Country: None (occurrence: None)
  Receive Date: 20110805
  Receipt Date: 20100927
  Transmission Date: 20111222
  Serious: No
  Sender: FDA-Public Use
  Company Number: US-ABBOTT-10P-163-0673467-00

PATIENT
  Sex: Male
  Weight: 88.53 kg

DRUGS (2)
  1. ASPIRIN [Concomitant]
     Indication: PRODUCT USED FOR UNKNOWN INDICATION
     Route: 048
  2. NIASPAN [Suspect]
     Indication: HIGH DENSITY LIPOPROTEIN DECREASED
     Dosage: DAILY DOSE: 2-1000MG AT BEDTIME-TITRATED
     Route: 048

REACTIONS (2)
  - PARAESTHESIA [None]
  - FLUSHING [None]
